FAERS Safety Report 4823724-0 (Version None)
Quarter: 2005Q4

REPORT INFORMATION
  Report Type: 
  Country: None (occurrence: None)
  Receive Date: 20051109
  Receipt Date: 20051107
  Transmission Date: 20060501
  Serious: Yes (Other)
  Sender: FDA-Public Use
  Company Number: US-GLAXOSMITHKLINE-A0581134A

PATIENT
  Sex: Female

DRUGS (1)
  1. PHAZYME ULTRA STRENGTH SOFTGELS [Suspect]
     Indication: DRUG USE FOR UNKNOWN INDICATION

REACTIONS (4)
  - ABDOMINAL DISTENSION [None]
  - HYPERSENSITIVITY [None]
  - OEDEMA [None]
  - PULMONARY CONGESTION [None]
